FAERS Safety Report 6725399-2 (Version None)
Quarter: 2010Q2

REPORT INFORMATION
  Report Type: 
  Country: None (occurrence: None)
  Receive Date: 20100512
  Receipt Date: 20100505
  Transmission Date: 20101027
  Serious: Yes (Death, Life-Threatening, Hospitalization, Disabling)
  Sender: FDA-Public Use
  Company Number: WAES 0907FRA00023

PATIENT
  Age: 44 Year
  Sex: Female

DRUGS (22)
  1. CAP VORINOSTAT [Suspect]
     Indication: NON-SMALL CELL LUNG CANCER
     Dosage: 400 MG/DAILY PO
     Route: 048
     Dates: start: 20090624, end: 20090703
  2. GEMCITABINE [Suspect]
     Indication: NON-SMALL CELL LUNG CANCER
     Dosage: 1250 MG/M[2]/DAILY PO
     Route: 048
     Dates: start: 20090626, end: 20090626
  3. GEMCITABINE [Suspect]
     Indication: NON-SMALL CELL LUNG CANCER
     Dosage: 1250 MG/M[2]/DAILY IV
     Route: 042
     Dates: start: 20090703, end: 20090703
  4. CISPLATIN [Suspect]
     Indication: NON-SMALL CELL LUNG CANCER
     Dosage: 75 MG/M[2]/DAILY IV
     Route: 042
     Dates: start: 20090626, end: 20090626
  5. EMEND [Concomitant]
  6. ACETAMINOPHEN [Concomitant]
  7. ACETAMINOPHEN AND CODEINE PHOSPHATE [Concomitant]
  8. ACETAMINOPHEN- PROPOXYPHENE HCL TAB [Concomitant]
  9. ENOXAPARIN SODIUM [Concomitant]
  10. ESOMEPRAZOLE MAGNESIUM [Concomitant]
  11. FENTANYL CITRATE [Concomitant]
  12. FONDAPARINUX SODIUM [Concomitant]
  13. KETOPROFEN [Concomitant]
  14. METHYLPREDNISOLONE SODIUM SUCCINATE [Concomitant]
  15. METOCLOPRAMIDE HYDROCHLORIDE [Concomitant]
  16. NEFOPAM HC1 [Concomitant]
  17. OMEPRAZOLE [Concomitant]
  18. ONDANSETRON HYDROCHLORIDE [Concomitant]
  19. POLYETHYLENE GLYCOL 4000 [Concomitant]
  20. PREDNISOLONE SODIUM METASULFONBENZOATE [Concomitant]
  21. PREGABALIN [Concomitant]
  22. TINZAPARIN SODIUM [Concomitant]

REACTIONS (11)
  - BLOOD CULTURE POSITIVE [None]
  - CEREBROVASCULAR ACCIDENT [None]
  - DEEP VEIN THROMBOSIS [None]
  - DISEASE PROGRESSION [None]
  - ENDOCARDITIS [None]
  - GENERAL PHYSICAL HEALTH DETERIORATION [None]
  - HYPOXIA [None]
  - ISCHAEMIC STROKE [None]
  - MITRAL VALVE INCOMPETENCE [None]
  - NON-SMALL CELL LUNG CANCER [None]
  - STAPHYLOCOCCAL INFECTION [None]
